FAERS Safety Report 9383623 (Version 1)
Quarter: 2013Q3

REPORT INFORMATION
  Report Type: Spontaneous
  Country: US (occurrence: US)
  Receive Date: 20130704
  Receipt Date: 20130704
  Transmission Date: 20140515
  Serious: No
  Sender: FDA-Public Use
  Company Number: US-PFIZER INC-2013196448

PATIENT
  Sex: Male

DRUGS (1)
  1. NEURONTIN [Suspect]
     Dosage: UNK
     Dates: start: 201306

REACTIONS (7)
  - Restlessness [Unknown]
  - Psychomotor hyperactivity [Unknown]
  - Hostility [Unknown]
  - Insomnia [Unknown]
  - Abnormal behaviour [Unknown]
  - Logorrhoea [Unknown]
  - Weight decreased [Unknown]
